FAERS Safety Report 12650933 (Version 1)
Quarter: 2016Q3

REPORT INFORMATION
  Report Type: Spontaneous
  Country: US (occurrence: US)
  Receive Date: 20160815
  Receipt Date: 20160815
  Transmission Date: 20161109
  Serious: No
  Sender: FDA-Public Use
  Company Number: US-JAZZ-2016-US-004982

PATIENT
  Age: 47 Year
  Sex: Female

DRUGS (11)
  1. NUVIGIL [Concomitant]
     Active Substance: ARMODAFINIL
  2. LITHIUM CARBONATE. [Concomitant]
     Active Substance: LITHIUM CARBONATE
  3. SUMATRIPTAN SUCCINATE. [Concomitant]
     Active Substance: SUMATRIPTAN SUCCINATE
  4. TIZANIDINE. [Concomitant]
     Active Substance: TIZANIDINE
  5. ALPRAZOLAM. [Concomitant]
     Active Substance: ALPRAZOLAM
  6. XYREM [Suspect]
     Active Substance: SODIUM OXYBATE
     Indication: NARCOLEPSY
     Dosage: 2.25 G, BID
     Route: 048
     Dates: start: 201603
  7. TOPAMAX [Concomitant]
     Active Substance: TOPIRAMATE
  8. VITAMIN D3 [Concomitant]
     Active Substance: CHOLECALCIFEROL
  9. TRAMADOL HCL [Concomitant]
     Active Substance: TRAMADOL HYDROCHLORIDE
  10. ATIVAN [Concomitant]
     Active Substance: LORAZEPAM
  11. LYRICA [Concomitant]
     Active Substance: PREGABALIN

REACTIONS (5)
  - Condition aggravated [Unknown]
  - Sleep-related eating disorder [Unknown]
  - Headache [Unknown]
  - Chest discomfort [Unknown]
  - Anxiety [Unknown]

NARRATIVE: CASE EVENT DATE: 201603
